FAERS Safety Report 7574270-5 (Version None)
Quarter: 2011Q2

REPORT INFORMATION
  Report Type: 
  Country: None (occurrence: None)
  Receive Date: 20110627
  Receipt Date: 20110531
  Transmission Date: 20111010
  Serious: Yes (Other)
  Sender: FDA-Public Use
  Company Number: US-BAYER-2011-018636

PATIENT
  Age: 18 Year
  Sex: Female
  Weight: 77 kg

DRUGS (3)
  1. YAZ [Suspect]
     Indication: CONTRACEPTION
     Dosage: UNK
     Dates: start: 20070817, end: 20081201
  2. PRILOSEC [Concomitant]
     Dosage: UNK
     Route: 048
     Dates: start: 20071201
  3. LOESTRIN 1.5/30 [Concomitant]
     Dosage: UNK
     Route: 048
     Dates: start: 20071214

REACTIONS (3)
  - CHOLECYSTECTOMY [None]
  - PAIN [None]
  - CHOLECYSTITIS CHRONIC [None]
